FAERS Safety Report 21064088 (Version 1)
Quarter: 2022Q3

REPORT INFORMATION
  Report Type: Spontaneous
  Country: US (occurrence: None)
  Receive Date: 20220708
  Receipt Date: 20220708
  Transmission Date: 20221027
  Serious: Yes (Other)
  Sender: FDA-Public Use
  Company Number: None

PATIENT
  Age: 42 Year
  Sex: Female

DRUGS (1)
  1. ESCITALOPRAM [Suspect]
     Active Substance: ESCITALOPRAM OXALATE
     Indication: Generalised anxiety disorder
     Dosage: FREQUENCY : DAILY;?
     Route: 048
     Dates: start: 20220613, end: 20220620

REACTIONS (2)
  - Eye pain [None]
  - Headache [None]

NARRATIVE: CASE EVENT DATE: 20220613
